FAERS Safety Report 10187847 (Version 1)
Quarter: 2014Q2

REPORT INFORMATION
  Report Type: Spontaneous
  Country: US (occurrence: US)
  Receive Date: 20140522
  Receipt Date: 20140522
  Transmission Date: 20141212
  Serious: No
  Sender: FDA-Public Use
  Company Number: US-SANOFI-AVENTIS-2013SA088528

PATIENT
  Sex: Female

DRUGS (3)
  1. LANTUS SOLOSTAR [Suspect]
     Indication: TYPE 2 DIABETES MELLITUS
     Dosage: DOSE:10 UNIT(S)
     Route: 058
     Dates: start: 20130824
  2. METFORMIN [Suspect]
     Route: 065
  3. SOLOSTAR [Concomitant]
     Dates: start: 20130824

REACTIONS (2)
  - Haemorrhage [Unknown]
  - Diarrhoea [Unknown]
